FAERS Safety Report 23798632 (Version 1)
Quarter: 2024Q2

REPORT INFORMATION
  Report Type: Spontaneous
  Country: FR (occurrence: FR)
  Receive Date: 20240430
  Receipt Date: 20240430
  Transmission Date: 20240716
  Serious: Yes (Hospitalization)
  Sender: FDA-Public Use
  Company Number: FR-AFSSAPS-RS2024000328

PATIENT
  Age: 57 Year
  Sex: Male
  Weight: 86 kg

DRUGS (2)
  1. IRINOTECAN [Suspect]
     Active Substance: IRINOTECAN
     Indication: Oesophageal adenocarcinoma
     Dosage: UNK
     Route: 042
     Dates: start: 20240215, end: 20240215
  2. FOLIC ACID [Suspect]
     Active Substance: FOLIC ACID
     Indication: Oesophageal adenocarcinoma
     Dosage: UNK
     Route: 065
     Dates: start: 20240215, end: 20240215

REACTIONS (6)
  - Arthralgia [Recovered/Resolved]
  - Chest pain [Recovered/Resolved]
  - Erythema [Recovered/Resolved]
  - Pain [Recovered/Resolved]
  - Hyperhidrosis [Recovered/Resolved]
  - Back pain [Recovered/Resolved]

NARRATIVE: CASE EVENT DATE: 20240215
